FAERS Safety Report 23905320 (Version 2)
Quarter: 2024Q2

REPORT INFORMATION
  Report Type: Report from Study
  Country: US (occurrence: US)
  Receive Date: 20240527
  Receipt Date: 20240607
  Transmission Date: 20240715
  Serious: Yes (Death, Other)
  Sender: FDA-Public Use
  Company Number: US-JAZZ PHARMACEUTICALS-2024-US-008124

PATIENT
  Age: 1 Year
  Sex: Male

DRUGS (3)
  1. EPIDIOLEX [Suspect]
     Active Substance: CANNABIDIOL
     Indication: Lennox-Gastaut syndrome
     Dosage: 0.6 MILLILITER, BID
     Route: 048
     Dates: start: 20240420, end: 20240422
  2. EPIDIOLEX [Suspect]
     Active Substance: CANNABIDIOL
     Dosage: 0.3 MILLILITER, BID
     Route: 048
     Dates: start: 202404
  3. PEDIASURE PEPTIDE 1.0 CAL [Concomitant]
     Indication: Product used for unknown indication
     Dosage: UNK
     Dates: start: 20240420

REACTIONS (1)
  - Death [Fatal]

NARRATIVE: CASE EVENT DATE: 20240422
